FAERS Safety Report 6183006-4 (Version None)
Quarter: 2009Q2

REPORT INFORMATION
  Report Type: 
  Country: None (occurrence: None)
  Receive Date: 20090507
  Receipt Date: 20090429
  Transmission Date: 20091009
  Serious: Yes (Other)
  Sender: FDA-Public Use
  Company Number: FR-AVENTIS-200911676FR

PATIENT
  Age: 71 Year
  Sex: Male

DRUGS (9)
  1. TAXOTERE [Suspect]
     Route: 042
     Dates: start: 20090201, end: 20090201
  2. TARGRETIN [Suspect]
     Route: 048
     Dates: start: 20080301
  3. ZOLADEX [Concomitant]
     Indication: DRUG USE FOR UNKNOWN INDICATION
  4. TAHOR [Concomitant]
     Indication: DRUG USE FOR UNKNOWN INDICATION
     Route: 048
  5. DIPROSONE                          /00008504/ [Concomitant]
     Indication: DRUG USE FOR UNKNOWN INDICATION
  6. DEXERYL                            /01579901/ [Concomitant]
     Indication: DRUG USE FOR UNKNOWN INDICATION
  7. DERMOVAL                           /00337102/ [Concomitant]
     Indication: DRUG USE FOR UNKNOWN INDICATION
  8. CARMUSTINE [Concomitant]
     Indication: DRUG USE FOR UNKNOWN INDICATION
  9. LEVOTHYROX [Concomitant]
     Indication: DRUG USE FOR UNKNOWN INDICATION
     Route: 048

REACTIONS (1)
  - SUBDURAL HAEMATOMA [None]
